FAERS Safety Report 19883713 (Version 1)
Quarter: 2021Q3

REPORT INFORMATION
  Report Type: Report from Study
  Country: None (occurrence: US)
  Receive Date: 20210927
  Receipt Date: 20210927
  Transmission Date: 20211014
  Serious: Yes (Other)
  Sender: FDA-Public Use
  Company Number: US-ABBVIE-21K-163-3899023-00

PATIENT
  Sex: Female

DRUGS (5)
  1. PFIZER?BIONTECH COVID?19 VACCINE [Concomitant]
     Active Substance: TOZINAMERAN
     Indication: COVID-19 IMMUNISATION
     Route: 030
     Dates: start: 20210709, end: 20210709
  2. IMBRUVICA [Suspect]
     Active Substance: IBRUTINIB
     Route: 048
  3. IMBRUVICA [Suspect]
     Active Substance: IBRUTINIB
     Indication: CHRONIC LYMPHOCYTIC LEUKAEMIA
     Route: 048
     Dates: start: 20210402, end: 2021
  4. PFIZER?BIONTECH COVID?19 VACCINE [Concomitant]
     Active Substance: TOZINAMERAN
     Route: 030
     Dates: start: 20210730, end: 20210730
  5. IMBRUVICA [Suspect]
     Active Substance: IBRUTINIB
     Indication: CHRONIC LYMPHOCYTIC LEUKAEMIA
     Route: 048
     Dates: start: 2021, end: 2021

REACTIONS (18)
  - Medical procedure [Unknown]
  - Pain [Recovering/Resolving]
  - Gastric pH decreased [Not Recovered/Not Resolved]
  - Diarrhoea [Recovered/Resolved]
  - Hiatus hernia [Not Recovered/Not Resolved]
  - Blood sodium decreased [Recovering/Resolving]
  - Arthralgia [Recovering/Resolving]
  - Dyspnoea [Recovering/Resolving]
  - Illness [Recovering/Resolving]
  - Chronic obstructive pulmonary disease [Recovering/Resolving]
  - Vomiting [Recovered/Resolved]
  - Dehydration [Recovering/Resolving]
  - Bone pain [Recovered/Resolved]
  - Anaemia [Not Recovered/Not Resolved]
  - Ovarian mass [Not Recovered/Not Resolved]
  - Hypoaesthesia [Recovering/Resolving]
  - Nausea [Recovered/Resolved]
  - Paraesthesia [Recovering/Resolving]

NARRATIVE: CASE EVENT DATE: 2021
